FAERS Safety Report 19942278 (Version 7)
Quarter: 2022Q1

REPORT INFORMATION
  Report Type: Report from Study
  Country: US (occurrence: US)
  Receive Date: 20211011
  Receipt Date: 20220304
  Transmission Date: 20220423
  Serious: Yes (Death, Hospitalization)
  Sender: FDA-Public Use
  Company Number: NVSC2021US231468

PATIENT
  Sex: Female
  Weight: 115.19 kg

DRUGS (6)
  1. TREPROSTINIL [Suspect]
     Active Substance: TREPROSTINIL
     Indication: Pulmonary arterial hypertension
     Dosage: 88, NG/KG/MIN
     Route: 058
     Dates: start: 20210406
  2. TREPROSTINIL [Suspect]
     Active Substance: TREPROSTINIL
     Dosage: 120, NG/KG/MIN
     Route: 065
  3. TREPROSTINIL [Suspect]
     Active Substance: TREPROSTINIL
     Dosage: UNK
     Route: 065
     Dates: start: 20210604
  4. TREPROSTINIL [Suspect]
     Active Substance: TREPROSTINIL
     Dosage: 106 NG/KG/MIN, CONT
     Route: 058
     Dates: start: 20210604
  5. WARFARIN [Concomitant]
     Active Substance: WARFARIN
     Indication: Product used for unknown indication
     Dosage: UNK
     Route: 065
  6. ADEMPAS [Concomitant]
     Active Substance: RIOCIGUAT
     Indication: Product used for unknown indication
     Dosage: UNK
     Route: 065

REACTIONS (8)
  - Pulmonary arterial hypertension [Fatal]
  - Renal failure [Unknown]
  - Heart rate increased [Unknown]
  - Weight decreased [Unknown]
  - Diarrhoea [Not Recovered/Not Resolved]
  - Generalised oedema [Unknown]
  - Injection site swelling [Unknown]
  - Injection site pain [Unknown]
